FAERS Safety Report 8233841-3 (Version None)
Quarter: 2012Q1

REPORT INFORMATION
  Report Type: 
  Country: None (occurrence: None)
  Receive Date: 20120326
  Receipt Date: 20120323
  Transmission Date: 20120608
  Serious: Yes (Other)
  Sender: FDA-Public Use
  Company Number: US-PFIZER INC-2012076128

PATIENT
  Sex: Female
  Weight: 92.063 kg

DRUGS (4)
  1. NORCO [Concomitant]
     Dosage: UNK
  2. PROZAC [Concomitant]
     Dosage: UNK
  3. CHANTIX [Suspect]
     Indication: SMOKING CESSATION THERAPY
     Dosage: 0.5 MG, 1X/DAY
     Route: 048
  4. KLONOPIN [Concomitant]
     Dosage: UNK

REACTIONS (1)
  - DYSPNOEA [None]
